FAERS Safety Report 12941291 (Version 1)
Quarter: 2016Q4

REPORT INFORMATION
  Report Type: Spontaneous
  Country: US (occurrence: US)
  Receive Date: 20161115
  Receipt Date: 20161115
  Transmission Date: 20170207
  Serious: Yes (Hospitalization)
  Sender: FDA-Public Use
  Company Number: None

PATIENT
  Age: 67 Year
  Sex: Male
  Weight: 74.2 kg

DRUGS (10)
  1. RAMIPRIL. [Suspect]
     Active Substance: RAMIPRIL
     Indication: HYPERTENSION
     Route: 048
  2. GLUCOTROL [Concomitant]
     Active Substance: GLIPIZIDE
  3. DAKLINZ [Concomitant]
  4. FE [Concomitant]
     Active Substance: IRON
  5. TOPROL XL [Concomitant]
     Active Substance: METOPROLOL SUCCINATE
  6. NORCO [Concomitant]
     Active Substance: ACETAMINOPHEN\HYDROCODONE BITARTRATE
  7. LASIX [Concomitant]
     Active Substance: FUROSEMIDE
  8. ATIVAN [Concomitant]
     Active Substance: LORAZEPAM
  9. ALDACTONE [Suspect]
     Active Substance: SPIRONOLACTONE
     Indication: OEDEMA
     Route: 048
  10. SOFOSBUVIR [Concomitant]
     Active Substance: SOFOSBUVIR

REACTIONS (2)
  - Acute kidney injury [None]
  - Hyperkalaemia [None]

NARRATIVE: CASE EVENT DATE: 20160621
